FAERS Safety Report 24918971 (Version 1)
Quarter: 2025Q1

REPORT INFORMATION
  Report Type: Report from Study
  Country: US (occurrence: US)
  Receive Date: 20250204
  Receipt Date: 20250204
  Transmission Date: 20250409
  Serious: Yes (Hospitalization, Other)
  Sender: NOVARTIS
  Company Number: US-002147023-NVSC2024US115853

PATIENT
  Sex: Female

DRUGS (2)
  1. KESIMPTA [Suspect]
     Active Substance: OFATUMUMAB
     Indication: Multiple sclerosis
     Dosage: 20 MG, QMO
     Route: 058
  2. DIMETHYL FUMARATE [Concomitant]
     Active Substance: DIMETHYL FUMARATE
     Indication: Product used for unknown indication
     Route: 065

REACTIONS (25)
  - Abdominal discomfort [Unknown]
  - Multiple sclerosis relapse [Unknown]
  - Diarrhoea [Not Recovered/Not Resolved]
  - Vomiting [Unknown]
  - Nausea [Unknown]
  - Abdominal pain upper [Unknown]
  - Asthenia [Unknown]
  - Brain fog [Unknown]
  - Memory impairment [Unknown]
  - Thinking abnormal [Unknown]
  - Fatigue [Unknown]
  - Speech disorder [Unknown]
  - Cystitis interstitial [Unknown]
  - Hypokinesia [Unknown]
  - Insomnia [Unknown]
  - Nasopharyngitis [Unknown]
  - Bone pain [Unknown]
  - Cough [Unknown]
  - Discomfort [Unknown]
  - Rhinalgia [Unknown]
  - Uterine leiomyoma [Unknown]
  - Limb discomfort [Unknown]
  - Illness [Unknown]
  - Inappropriate schedule of product administration [Unknown]
  - Gait disturbance [Unknown]
